FAERS Safety Report 11496291 (Version 5)
Quarter: 2021Q1

REPORT INFORMATION
  Report Type: Report from Study
  Country: AU (occurrence: AU)
  Receive Date: 20150911
  Receipt Date: 20210201
  Transmission Date: 20210419
  Serious: Yes (Hospitalization)
  Sender: FDA-Public Use
  Company Number: PHHO2015AU013866

PATIENT
  Age: 70 Year
  Sex: Female
  Weight: 75.5 kg

DRUGS (54)
  1. PLACEBO [Suspect]
     Active Substance: UNSPECIFIED INGREDIENT
     Dosage: 400 MG, QD
     Route: 048
     Dates: start: 20161121
  2. NUROFEN (P) [Concomitant]
     Active Substance: IBUPROFEN
     Indication: ARTHRALGIA
     Dosage: 2 DF (TABS), PRN
     Route: 048
     Dates: start: 201402, end: 20140829
  3. NUROFEN (P) [Concomitant]
     Active Substance: IBUPROFEN
     Dosage: 400?200 PRN
     Route: 048
     Dates: start: 20161110
  4. THYROXINE [Concomitant]
     Active Substance: LEVOTHYROXINE
     Indication: BLOOD THYROID STIMULATING HORMONE DECREASED
     Dosage: 125 MG, QD
     Route: 048
     Dates: start: 201108
  5. STEMETIL [Concomitant]
     Active Substance: PROCHLORPERAZINE
     Dosage: 5 UG, PRN
     Route: 048
     Dates: start: 20140911
  6. ROXITHROMYCIN [Concomitant]
     Active Substance: ROXITHROMYCIN
     Indication: SINUSITIS
     Dosage: 150 MG, BID
     Route: 048
     Dates: start: 20160502
  7. CHLOROMYCETIN [Concomitant]
     Active Substance: CHLORAMPHENICOL
     Indication: CONJUNCTIVITIS
     Dosage: 0.5 %, UNK
     Route: 047
     Dates: start: 20140915, end: 20140919
  8. COSOPT [Concomitant]
     Active Substance: DORZOLAMIDE HYDROCHLORIDE\TIMOLOL MALEATE
     Indication: GLAUCOMA
     Dosage: T EACH DAY, BD
     Route: 047
     Dates: start: 20141015, end: 20150918
  9. PARAMAX [Concomitant]
     Indication: ARTHRALGIA
     Dosage: 200 G, PRN
     Route: 048
     Dates: start: 201411
  10. ZYRTEC [Concomitant]
     Active Substance: CETIRIZINE HYDROCHLORIDE
     Indication: CONJUNCTIVITIS
     Dosage: 10 MG, UNK
     Route: 048
     Dates: start: 20140827, end: 201409
  11. VIT D [Concomitant]
     Active Substance: VITAMIN D NOS
     Indication: VITAMIN D DEFICIENCY
     Dosage: 1000 IU, QD
     Route: 048
     Dates: start: 20150324
  12. VOLTAREN RAPID [Concomitant]
     Active Substance: DICLOFENAC POTASSIUM
     Indication: CHEST PAIN
     Dosage: 25 MG, PRN
     Route: 048
     Dates: start: 20160724, end: 20160730
  13. FLUVAX [Concomitant]
     Active Substance: INFLUENZA VIRUS VACCINE
     Indication: ANTIVIRAL PROPHYLAXIS
     Dosage: 0.5 ML, UNK
     Route: 030
     Dates: start: 20150511, end: 20150511
  14. NUROFEN (P) [Concomitant]
     Active Substance: IBUPROFEN
     Indication: BACK PAIN
     Dosage: 200 MG, PRN
     Route: 048
     Dates: start: 201411
  15. NUROFEN (P) [Concomitant]
     Active Substance: IBUPROFEN
     Indication: EYE PAIN
     Dosage: 400 MG, PRN
     Route: 048
     Dates: start: 20160326, end: 201610
  16. STEMETIL [Concomitant]
     Active Substance: PROCHLORPERAZINE
     Indication: NAUSEA
     Dosage: 5 UG, PRN
     Route: 048
     Dates: start: 20140906, end: 20140906
  17. PANADOL [Concomitant]
     Active Substance: ACETAMINOPHEN
     Indication: BACK PAIN
  18. CICLESONIDE [Concomitant]
     Active Substance: CICLESONIDE
     Indication: SINUSITIS
     Dosage: 50 UG, BID
     Route: 045
     Dates: start: 20140915, end: 20140925
  19. PANADEINE [Concomitant]
     Indication: GASTROINTESTINAL INFECTION
     Dosage: 1 DF (TABLET) TDS
     Route: 048
     Dates: end: 201608
  20. PLACEBO [Suspect]
     Active Substance: UNSPECIFIED INGREDIENT
     Dosage: 400 MG, QD
     Route: 048
     Dates: start: 20151001, end: 20161108
  21. IMODIUM [Concomitant]
     Active Substance: LOPERAMIDE HYDROCHLORIDE
     Indication: DIARRHOEA
     Dosage: 2 MG, PRN
     Route: 048
     Dates: start: 20150404, end: 20150405
  22. DIPROSONE [Concomitant]
     Active Substance: BETAMETHASONE DIPROPIONATE
     Indication: RASH
     Dosage: 1 DF (APPLICATION), PRN
     Route: 061
     Dates: start: 201505
  23. CRESTOR [Concomitant]
     Active Substance: ROSUVASTATIN CALCIUM
     Indication: BLOOD CHOLESTEROL INCREASED
     Dosage: 100 MG, QD
     Route: 048
     Dates: start: 201008
  24. STEMETIL [Concomitant]
     Active Substance: PROCHLORPERAZINE
     Indication: VERTIGO
     Dosage: 5 MG, PRN
     Route: 048
     Dates: start: 1999
  25. ROXITHROMYCIN [Concomitant]
     Active Substance: ROXITHROMYCIN
     Indication: UPPER RESPIRATORY TRACT INFECTION
     Dosage: 150 MG, BID
     Route: 048
     Dates: start: 20140824, end: 20140829
  26. AUGMENTIN DUO FORTE [Concomitant]
     Active Substance: AMOXICILLIN\CLAVULANATE POTASSIUM
     Indication: INFLUENZA LIKE ILLNESS
     Dosage: 8575/125 BID
     Route: 048
     Dates: start: 20140915, end: 20140925
  27. DENOSUMAB [Concomitant]
     Active Substance: DENOSUMAB
     Indication: PROPHYLAXIS
     Dosage: 120 MG, QMO
     Route: 058
     Dates: start: 20140911
  28. DICLOFENAC [Concomitant]
     Active Substance: DICLOFENAC
     Indication: BACK PAIN
     Dosage: 50 MG, BID
     Route: 048
     Dates: start: 20150119, end: 20150126
  29. PLACEBO [Suspect]
     Active Substance: UNSPECIFIED INGREDIENT
     Indication: BREAST CANCER
     Dosage: 400 MG, QD
     Route: 048
     Dates: start: 20140901, end: 20150901
  30. COMPARATOR LETROZOLE [Suspect]
     Active Substance: LETROZOLE
     Indication: BREAST CANCER
     Dosage: 2.5 MG, QD
     Route: 048
     Dates: start: 20140901
  31. XALATAN [Concomitant]
     Active Substance: LATANOPROST
     Indication: GLAUCOMA
     Dosage: 2.5 XI EYE DROPS
     Route: 047
     Dates: start: 20150821
  32. TOBRAMYCIN. [Concomitant]
     Active Substance: TOBRAMYCIN
     Indication: CONJUNCTIVITIS
     Dosage: 2 GTT, QD
     Route: 047
     Dates: start: 20140827, end: 201409
  33. NAPROSYN [Concomitant]
     Active Substance: NAPROXEN
     Indication: ARTHRALGIA
     Dosage: 750 MG, PRN D
     Route: 048
     Dates: start: 20160602, end: 201610
  34. NUROFEN (P) [Concomitant]
     Active Substance: IBUPROFEN
     Indication: CHEST PAIN
     Dosage: 1/1 PRN
     Route: 048
     Dates: start: 20141105
  35. AUGMENTIN DUO FORTE [Concomitant]
     Active Substance: AMOXICILLIN\CLAVULANATE POTASSIUM
     Indication: SINUSITIS
     Dosage: 875/125 MG BID
     Route: 048
     Dates: start: 20150325, end: 20150413
  36. AUGMENTIN DUO FORTE [Concomitant]
     Active Substance: AMOXICILLIN\CLAVULANATE POTASSIUM
     Indication: URINARY TRACT INFECTION
     Dosage: 75/125, BID
     Route: 048
     Dates: start: 20160714, end: 20160719
  37. RIKODEINE [Concomitant]
     Active Substance: DIHYDROCODEINE BITARTRATE
     Indication: COUGH
     Dosage: 10 UG, PRN
     Route: 048
     Dates: start: 20140901, end: 20140925
  38. FLAGYL [Concomitant]
     Active Substance: METRONIDAZOLE\METRONIDAZOLE HYDROCHLORIDE
     Indication: GASTROINTESTINAL INFECTION
     Dosage: 400 MG, TDS
     Route: 048
     Dates: start: 20160627, end: 20160704
  39. TRIMETHOPRIM. [Concomitant]
     Active Substance: TRIMETHOPRIM
     Indication: KIDNEY INFECTION
     Dosage: 300 MG, D
     Route: 048
     Dates: start: 20160621, end: 20160627
  40. MIDAZOLAM. [Concomitant]
     Active Substance: MIDAZOLAM
     Indication: PROPHYLAXIS
     Dosage: 2 MG, STAT
     Route: 042
     Dates: start: 20160905, end: 20160905
  41. ALPHAGAN P [Concomitant]
     Active Substance: BRIMONIDINE TARTRATE
     Indication: GLAUCOMA
     Dosage: 2 MG/ML, BID
     Route: 047
     Dates: start: 20150608, end: 20150821
  42. NUROFEN (P) [Concomitant]
     Active Substance: IBUPROFEN
     Indication: ARTHRALGIA
     Dosage: 200?400 MG, PRN
     Route: 048
     Dates: start: 20150512
  43. ALBALON [Concomitant]
     Active Substance: NAPHAZOLINE HYDROCHLORIDE
     Indication: CONJUNCTIVITIS
     Dosage: 0.1 %, QD
     Route: 047
     Dates: start: 20140919, end: 20140925
  44. DENOSUMAB [Concomitant]
     Active Substance: DENOSUMAB
     Dosage: 120 MG, 2 EYES, 3 MONTHLY
     Route: 058
     Dates: start: 20151123
  45. HEPATITIS B VACCINE [Concomitant]
     Active Substance: HEPATITIS B VIRUS VACCINE
     Indication: PROPHYLAXIS
     Dosage: STAT
     Route: 030
     Dates: start: 20141119, end: 20141119
  46. ACETAZOLAMIDE. [Concomitant]
     Active Substance: ACETAZOLAMIDE
     Indication: GLAUCOMA
     Dosage: 25 MG, QID
     Route: 048
     Dates: start: 20150821
  47. AZOPT [Concomitant]
     Active Substance: BRINZOLAMIDE
     Indication: GLAUCOMA
     Dosage: 1 GTT, BID
     Route: 047
     Dates: start: 200901, end: 20141014
  48. PANADOL [Concomitant]
     Active Substance: ACETAMINOPHEN
     Indication: CHEST PAIN
     Dosage: 500 G, PRN
     Route: 048
     Dates: start: 20140829
  49. ULTRACLEAN EPA/DHA PLUS [Concomitant]
     Indication: SUPPLEMENTATION THERAPY
     Dosage: 5000 UG, QD
     Route: 048
     Dates: start: 201410
  50. PARAMAX [Concomitant]
     Dosage: 1 G, PRN
     Route: 048
     Dates: start: 20150512
  51. ZYRTEC [Concomitant]
     Active Substance: CETIRIZINE HYDROCHLORIDE
     Indication: SINUSITIS
     Dosage: 10 MG, D
     Route: 048
     Dates: start: 20160502
  52. PROPOFOL. [Concomitant]
     Active Substance: PROPOFOL
     Indication: PROPHYLAXIS
     Dosage: 70 MG, STAT
     Route: 042
     Dates: start: 20160905, end: 20160905
  53. PROPOFOL. [Concomitant]
     Active Substance: PROPOFOL
     Indication: SURGERY
     Dosage: 150 MG, STAT
     Route: 065
     Dates: start: 20161110, end: 20161110
  54. KEFZOL [Concomitant]
     Active Substance: CEFAZOLIN SODIUM
     Indication: PROPHYLAXIS
     Dosage: 2 G, STAT
     Route: 042
     Dates: start: 20160905, end: 20160905

REACTIONS (3)
  - Glaucoma [Recovered/Resolved]
  - Glaucoma [Recovered/Resolved]
  - Cataract [Recovered/Resolved]

NARRATIVE: CASE EVENT DATE: 20150901
